FAERS Safety Report 17407825 (Version 9)
Quarter: 2021Q2

REPORT INFORMATION
  Report Type: Spontaneous
  Country: US (occurrence: US)
  Receive Date: 20200212
  Receipt Date: 20210526
  Transmission Date: 20210716
  Serious: No
  Sender: FDA-Public Use
  Company Number: US-PFIZER INC-2020058167

PATIENT
  Age: 54 Year
  Sex: Female

DRUGS (5)
  1. XELJANZ XR [Suspect]
     Active Substance: TOFACITINIB CITRATE
     Indication: RHEUMATOID ARTHRITIS
     Dosage: 11 MG, 1X/DAY
     Route: 048
     Dates: start: 2018
  2. XELJANZ XR [Suspect]
     Active Substance: TOFACITINIB CITRATE
     Dosage: 11 MG, 1X/DAY
     Route: 048
     Dates: start: 20200518
  3. DITROPAN [Concomitant]
     Active Substance: OXYBUTYNIN CHLORIDE
     Dosage: UNK
  4. XELJANZ XR [Suspect]
     Active Substance: TOFACITINIB CITRATE
     Dosage: 11 MG, DAILY
     Route: 048
     Dates: start: 20200224, end: 2020
  5. CYMBALTA [Concomitant]
     Active Substance: DULOXETINE HYDROCHLORIDE
     Dosage: UNK

REACTIONS (20)
  - Therapeutic product effect incomplete [Unknown]
  - Asthma [Unknown]
  - Cystitis [Recovering/Resolving]
  - Cough [Unknown]
  - Myalgia [Not Recovered/Not Resolved]
  - Therapeutic response unexpected [Unknown]
  - Electrocardiogram abnormal [Unknown]
  - Micturition urgency [Unknown]
  - Peripheral swelling [Unknown]
  - Impaired healing [Unknown]
  - Constipation [Unknown]
  - Chest pain [Not Recovered/Not Resolved]
  - Dyspnoea [Recovered/Resolved]
  - Depression [Recovering/Resolving]
  - Immune system disorder [Unknown]
  - Blood cholesterol increased [Unknown]
  - Illness [Unknown]
  - Rhinorrhoea [Unknown]
  - Osteoarthritis [Not Recovered/Not Resolved]
  - Muscle strain [Unknown]
